FAERS Safety Report 20930824 (Version 1)
Quarter: 2022Q2

REPORT INFORMATION
  Report Type: Spontaneous
  Country: US (occurrence: US)
  Receive Date: 20220608
  Receipt Date: 20220608
  Transmission Date: 20220721
  Serious: No
  Sender: FDA-Public Use
  Company Number: US-ALLERGAN-2209612US

PATIENT
  Sex: Female

DRUGS (1)
  1. CRINONE [Suspect]
     Active Substance: PROGESTERONE
     Indication: Infertility
     Dosage: ONE IN THE MORNING AND ONE IN THE EVENING
     Dates: start: 202203

REACTIONS (3)
  - Wrong technique in device usage process [Unknown]
  - Product packaging quantity issue [Unknown]
  - Device issue [Unknown]
